FAERS Safety Report 8092415-8 (Version None)
Quarter: 2012Q1

REPORT INFORMATION
  Report Type: 
  Country: None (occurrence: None)
  Receive Date: 20120128
  Receipt Date: 20110829
  Transmission Date: 20120608
  Serious: No
  Sender: FDA-Public Use
  Company Number: US-ABBOTT-11P-163-0851297-00

PATIENT
  Sex: Female
  Weight: 3.814 kg

DRUGS (1)
  1. HUMIRA [Suspect]
     Indication: MATERNAL EXPOSURE TIMING UNSPECIFIED
     Route: 064

REACTIONS (2)
  - PREMATURE BABY [None]
  - FOETAL EXPOSURE DURING PREGNANCY [None]
